FAERS Safety Report 10260369 (Version 1)
Quarter: 2014Q2

REPORT INFORMATION
  Report Type: Spontaneous
  Country: US (occurrence: US)
  Receive Date: 20140625
  Receipt Date: 20140625
  Transmission Date: 20141212
  Serious: No
  Sender: FDA-Public Use
  Company Number: US-SA-2014SA079320

PATIENT
  Age: 44 Year
  Sex: Male

DRUGS (3)
  1. AUBAGIO [Suspect]
     Indication: PRODUCT USED FOR UNKNOWN INDICATION
     Route: 048
     Dates: start: 20130522
  2. FISH OIL [Concomitant]
  3. MELATONIN [Concomitant]

REACTIONS (2)
  - Pollakiuria [Unknown]
  - Dysuria [Unknown]
